FAERS Safety Report 14482198 (Version 1)
Quarter: 2018Q1

REPORT INFORMATION
  Report Type: Spontaneous
  Country: GB (occurrence: US)
  Receive Date: 20180202
  Receipt Date: 20180202
  Transmission Date: 20180509
  Serious: Yes (Hospitalization)
  Sender: FDA-Public Use
  Company Number: None

PATIENT
  Age: 63 Year
  Sex: Female
  Weight: 58.6 kg

DRUGS (1)
  1. FEMARA [Suspect]
     Active Substance: LETROZOLE
     Dates: end: 20180118

REACTIONS (4)
  - Hypokalaemia [None]
  - Dehydration [None]
  - Malaise [None]
  - Glomerular filtration rate decreased [None]

NARRATIVE: CASE EVENT DATE: 20180119
